FAERS Safety Report 7940010-0 (Version None)
Quarter: 2011Q4

REPORT INFORMATION
  Report Type: 
  Country: None (occurrence: None)
  Receive Date: 20111125
  Receipt Date: 20111122
  Transmission Date: 20120403
  Serious: No
  Sender: FDA-Public Use
  Company Number: US-PFIZER INC-2011267503

PATIENT
  Sex: Female
  Weight: 63.5 kg

DRUGS (4)
  1. PRISTIQ [Suspect]
     Indication: DEPRESSION
     Dosage: 50 MG, 1X/DAY
     Route: 048
     Dates: start: 20110915
  2. ZYRTEC [Concomitant]
     Dosage: UNK
  3. ACETAMINOPHEN [Concomitant]
     Dosage: UNK
  4. HYDROCORTISONE [Concomitant]
     Dosage: 25 MG

REACTIONS (4)
  - BLOOD CHOLESTEROL INCREASED [None]
  - MALAISE [None]
  - DIZZINESS [None]
  - NAUSEA [None]
